FAERS Safety Report 9438625 (Version 3)
Quarter: 2013Q3

REPORT INFORMATION
  Report Type: Spontaneous
  Country: US (occurrence: US)
  Receive Date: 20130802
  Receipt Date: 20130918
  Transmission Date: 20140515
  Serious: Yes (Hospitalization)
  Sender: FDA-Public Use
  Company Number: US-GLAXOSMITHKLINE-B0912538A

PATIENT
  Age: 59 Year
  Sex: Female
  Weight: 66.8 kg

DRUGS (1)
  1. AVANDIA [Suspect]
     Dosage: 2MG TWICE PER DAY
     Route: 048
     Dates: end: 20100801

REACTIONS (3)
  - Cerebrovascular accident [Unknown]
  - Depression [Unknown]
  - Pain [Unknown]
